FAERS Safety Report 10034244 (Version 1)
Quarter: 2014Q1

REPORT INFORMATION
  Report Type: Spontaneous
  Country: US (occurrence: None)
  Receive Date: 20140324
  Receipt Date: 20140324
  Transmission Date: 20141002
  Serious: No
  Sender: FDA-Public Use
  Company Number: None

PATIENT
  Age: 37 Year
  Sex: Female
  Weight: 83.01 kg

DRUGS (1)
  1. MIRENA [Suspect]

REACTIONS (4)
  - Uterine pain [None]
  - Embedded device [None]
  - Device dislocation [None]
  - Device dislocation [None]
